FAERS Safety Report 5772210-2 (Version None)
Quarter: 2008Q2

REPORT INFORMATION
  Report Type: 
  Country: None (occurrence: None)
  Receive Date: 20080613
  Receipt Date: 20080602
  Transmission Date: 20081010
  Serious: Yes (Hospitalization, Other)
  Sender: FDA-Public Use
  Company Number: FR-GILEAD-2008-0016801

PATIENT
  Sex: Male
  Weight: 94 kg

DRUGS (15)
  1. TRUVADA [Suspect]
     Indication: HIV INFECTION
     Route: 048
     Dates: start: 20060815, end: 20080401
  2. REYATAZ [Concomitant]
     Indication: HIV INFECTION
  3. NORVIR [Concomitant]
     Indication: HIV INFECTION
  4. RIVOTRIL [Concomitant]
  5. FRACTAL 20 [Concomitant]
  6. IRBESARTAN [Concomitant]
  7. ASPEGIC 1000 [Concomitant]
  8. ASPIRIN [Concomitant]
     Dates: start: 20070728
  9. PLAVIX [Concomitant]
     Dates: start: 20070728
  10. VOLUVEN [Concomitant]
     Dates: start: 20070728
  11. PERINDOPRIL ERBUMINE [Concomitant]
  12. KARDEGIC [Concomitant]
  13. IMOVANE [Concomitant]
  14. NEXIUM [Concomitant]
  15. TRIATEC DETENSIEL [Concomitant]

REACTIONS (3)
  - BLOOD CREATININE INCREASED [None]
  - DIZZINESS [None]
  - MYOCARDIAL INFARCTION [None]
